FAERS Safety Report 11227235 (Version 3)
Quarter: 2016Q1

REPORT INFORMATION
  Report Type: Report from Study
  Country: BR (occurrence: BR)
  Receive Date: 20150630
  Receipt Date: 20160329
  Transmission Date: 20160525
  Serious: Yes (Other)
  Sender: FDA-Public Use
  Company Number: PHHY2015BR078183

PATIENT
  Sex: Female
  Weight: 65 kg

DRUGS (4)
  1. EXJADE [Suspect]
     Active Substance: DEFERASIROX
     Indication: THALASSAEMIA
     Dosage: 10 MG/KG, QD (1 DF: 500 MG)
     Route: 048
     Dates: end: 201602
  2. HYDROXYUREA. [Concomitant]
     Active Substance: HYDROXYUREA
     Indication: PRODUCT USED FOR UNKNOWN INDICATION
     Route: 065
  3. EXJADE [Suspect]
     Active Substance: DEFERASIROX
     Dosage: 15 MG/KG, QD (750 MG)
     Route: 048
  4. PURAN [Concomitant]
     Active Substance: LEVOTHYROXINE SODIUM
     Indication: PRODUCT USED FOR UNKNOWN INDICATION
     Route: 065

REACTIONS (8)
  - Malaise [Unknown]
  - Cough [Unknown]
  - Pneumonia [Recovered/Resolved]
  - Varicose ulceration [Recovering/Resolving]
  - Urinary tract infection [Unknown]
  - Influenza [Unknown]
  - Haemoglobin decreased [Unknown]
  - Asthenia [Unknown]
